FAERS Safety Report 10086807 (Version 2)
Quarter: 2014Q2

REPORT INFORMATION
  Report Type: Report from Study
  Country: TR (occurrence: TR)
  Receive Date: 20140418
  Receipt Date: 20140612
  Transmission Date: 20141212
  Serious: Yes (Other)
  Sender: FDA-Public Use
  Company Number: TR-US-EMD SERONO, INC.-7282006

PATIENT
  Sex: Female
  Weight: 69 kg

DRUGS (2)
  1. REBIF [Suspect]
     Indication: MULTIPLE SCLEROSIS
     Dates: start: 201110
  2. FERROUS GLYCINE SULFATE [Suspect]
     Indication: IRON DEFICIENCY

REACTIONS (4)
  - Tonsillitis [Recovered/Resolved]
  - Cholelithiasis [Not Recovered/Not Resolved]
  - Lower limb fracture [Recovered/Resolved]
  - Fall [Unknown]
